FAERS Safety Report 25542370 (Version 1)
Quarter: 2025Q3

REPORT INFORMATION
  Report Type: Spontaneous
  Country: US (occurrence: US)
  Receive Date: 20250711
  Receipt Date: 20250711
  Transmission Date: 20251021
  Serious: Yes (Hospitalization)
  Sender: SANOFI AVENTIS
  Company Number: US-DialogSolutions-SAAVPROD-PI796816-C1

PATIENT
  Age: 70 Year
  Sex: Male

DRUGS (1)
  1. DUPILUMAB [Suspect]
     Active Substance: DUPILUMAB
     Indication: Psoriasis
     Route: 058

REACTIONS (8)
  - Erythrodermic psoriasis [Unknown]
  - Off label use [Unknown]
  - Paradoxical psoriasis [Recovering/Resolving]
  - Rash erythematous [Recovering/Resolving]
  - Rash pruritic [Recovering/Resolving]
  - Erythema [Recovering/Resolving]
  - Burning sensation [Recovering/Resolving]
  - Skin exfoliation [Recovering/Resolving]
